FAERS Safety Report 8840159 (Version 1)
Quarter: 2012Q4

REPORT INFORMATION
  Report Type: 
  Country: FR (occurrence: MX)
  Receive Date: 20121015
  Receipt Date: 20121015
  Transmission Date: 20130627
  Serious: Yes (Death)
  Sender: FDA-Public Use
  Company Number: FR-OTSUKA-US-2012-11506

PATIENT
  Age: 14 Year
  Sex: Male

DRUGS (9)
  1. BUSULFEX [Suspect]
     Indication: STEM CELL TRANSPLANT
     Dosage: 4 mg/kg, for 4 days
     Route: 042
  2. CYCLOPHOSPHAMIDE [Concomitant]
     Indication: STEM CELL TRANSPLANT
     Dosage: 50 mg/kg, daily dose, for 4 days
     Route: 042
  3. ETOPOSIDE [Concomitant]
     Indication: STEM CELL TRANSPLANT
     Dosage: 40 mg/g, daily dose, for 1 day
     Route: 042
  4. ORTHOCLONE OKT 3 [Concomitant]
     Indication: STEM CELL TRANSPLANT
     Dosage: 0.1 mg/kg, daily dose, for 14 days
  5. FLUCONAZOLE [Concomitant]
     Indication: INFECTION PROPHYLAXIS
     Dosage: 10 mg/kg, daily dose
  6. ACYCLOVIR [Concomitant]
     Indication: INFECTION PROPHYLAXIS
     Dosage: 750 mg/m2, bid
  7. CIPROFLOXACIN [Concomitant]
     Indication: INFECTION PROPHYLAXIS
     Dosage: 20 mg/kg, daily dose
  8. TRIMETOPRIM + SULFAMETOXAZOL [Concomitant]
     Dosage: 5 mg/kg, biw
  9. IMMUNOGLOBULIN [Concomitant]
     Dosage: 400 mg/kg, qw
     Route: 042

REACTIONS (3)
  - Cytomegalovirus infection [Fatal]
  - Pneumonia cytomegaloviral [Fatal]
  - Fungal infection [Fatal]
